FAERS Safety Report 6796185-2 (Version None)
Quarter: 2010Q2

REPORT INFORMATION
  Report Type: 
  Country: None (occurrence: None)
  Receive Date: 20100625
  Receipt Date: 20100615
  Transmission Date: 20101027
  Serious: Yes (Other)
  Sender: FDA-Public Use
  Company Number: US-ELI_LILLY_AND_COMPANY-US201006005536

PATIENT
  Age: 66 Year
  Sex: Male

DRUGS (2)
  1. CIALIS [Suspect]
  2. TAMOXIFEN [Concomitant]

REACTIONS (1)
  - BREAST CANCER [None]
